FAERS Safety Report 5974990-X (Version None)
Quarter: 2008Q4

REPORT INFORMATION
  Report Type: 
  Country: None (occurrence: None)
  Receive Date: 20081110
  Receipt Date: 20081027
  Transmission Date: 20090506
  Serious: Yes (Disabling)
  Sender: FDA-Public Use
  Company Number: 2008-03020

PATIENT
  Age: 64 Year
  Sex: Male

DRUGS (7)
  1. IMMUCYST [Suspect]
     Indication: BLADDER CANCER
     Dosage: 81.0 MG
     Route: 043
     Dates: start: 20080229, end: 20080307
  2. MAGNESIUM OXIDE [Concomitant]
  3. FAMOTIDINE [Concomitant]
  4. CARBAZOCHROME SODIUM SULFONATE [Concomitant]
  5. TRANEXAMIC ACID [Concomitant]
  6. LOXOPROFEN SODIUM [Concomitant]
  7. BUPRENORPHINE HYDROCHLORIDE [Concomitant]

REACTIONS (15)
  - ALANINE AMINOTRANSFERASE INCREASED [None]
  - ASPARTATE AMINOTRANSFERASE INCREASED [None]
  - BLOOD BILIRUBIN INCREASED [None]
  - BLOOD CREATININE INCREASED [None]
  - BLOOD UREA INCREASED [None]
  - BLOOD URINE PRESENT [None]
  - CONTRACTED BLADDER [None]
  - HAEMATURIA [None]
  - NEUTROPHIL PERCENTAGE ABNORMAL [None]
  - PLATELET COUNT DECREASED [None]
  - POLLAKIURIA [None]
  - RED BLOOD CELL COUNT DECREASED [None]
  - URGE INCONTINENCE [None]
  - URINE OUTPUT DECREASED [None]
  - WHITE BLOOD CELL COUNT INCREASED [None]
